FAERS Safety Report 13567146 (Version 1)
Quarter: 2017Q2

REPORT INFORMATION
  Report Type: Spontaneous
  Country: US (occurrence: US)
  Receive Date: 20170522
  Receipt Date: 20170522
  Transmission Date: 20170830
  Serious: No
  Sender: FDA-Public Use
  Company Number: US-TEVA-762010USA

PATIENT
  Sex: Female

DRUGS (1)
  1. CLONIDINE. [Suspect]
     Active Substance: CLONIDINE
     Route: 062

REACTIONS (3)
  - Product adhesion issue [Unknown]
  - Application site pruritus [Not Recovered/Not Resolved]
  - Drug level increased [Unknown]
